FAERS Safety Report 16179809 (Version 2)
Quarter: 2019Q2

REPORT INFORMATION
  Report Type: Spontaneous
  Country: US (occurrence: US)
  Receive Date: 20190410
  Receipt Date: 20190611
  Transmission Date: 20190711
  Serious: No
  Sender: FDA-Public Use
  Company Number: US-PFIZER INC-2019147025

PATIENT
  Age: 71 Year
  Sex: Female

DRUGS (2)
  1. EUCRISA [Suspect]
     Active Substance: CRISABOROLE
     Indication: FUNGAL INFECTION
     Dosage: TWICE A DAY FOR TWO WEEKS, THEN TWICE DAILY FOR UP TO 3 DAYS PER WEEK
     Route: 061
     Dates: start: 20190305, end: 20190404
  2. EUCRISA [Suspect]
     Active Substance: CRISABOROLE
     Indication: ECZEMA

REACTIONS (1)
  - Therapeutic product effect incomplete [Unknown]
